FAERS Safety Report 13155835 (Version 1)
Quarter: 2017Q1

REPORT INFORMATION
  Report Type: Spontaneous
  Country: US (occurrence: US)
  Receive Date: 20170126
  Receipt Date: 20170126
  Transmission Date: 20170428
  Serious: No
  Sender: FDA-Public Use
  Company Number: US-ROCHE-1295958

PATIENT
  Sex: Female

DRUGS (5)
  1. ERYTHROMYCIN. [Concomitant]
     Active Substance: ERYTHROMYCIN
  2. MORTIN [Concomitant]
     Active Substance: SULFAMETHOXAZOLE\TRIMETHOPRIM
     Indication: CONFUSIONAL STATE
  3. LYRICA [Concomitant]
     Active Substance: PREGABALIN
  4. VALIUM [Suspect]
     Active Substance: DIAZEPAM
     Indication: TREMOR
     Route: 065
  5. PERCOCET [Concomitant]
     Active Substance: ACETAMINOPHEN\OXYCODONE HYDROCHLORIDE
     Indication: DYSPEPSIA
     Route: 065

REACTIONS (1)
  - Tremor [Unknown]
